FAERS Safety Report 6183618-8 (Version None)
Quarter: 2009Q2

REPORT INFORMATION
  Report Type: 
  Country: None (occurrence: None)
  Receive Date: 20090508
  Receipt Date: 20090428
  Transmission Date: 20091009
  Serious: Yes (Hospitalization)
  Sender: FDA-Public Use
  Company Number: SE-PFIZER INC-2009204307

PATIENT
  Age: 84 Year

DRUGS (14)
  1. ZYVOXID [Suspect]
     Indication: POSTOPERATIVE WOUND INFECTION
     Dosage: UNK
     Route: 048
     Dates: start: 20090304, end: 20090312
  2. ATORVASTATIN CALCIUM [Concomitant]
     Dosage: UNK
  3. KALCIPOS-D [Concomitant]
     Dosage: UNK
  4. OMEPRAZOL [Concomitant]
     Dosage: UNK
  5. METOPROLOL [Concomitant]
     Dosage: UNK
  6. ENALAPRIL [Concomitant]
     Dosage: UNK
  7. COLCHICINE [Concomitant]
     Dosage: UNK
     Dates: start: 20090225
  8. LEVOTHYROXINE SODIUM [Concomitant]
     Dosage: UNK
  9. CYANOCOBALAMIN [Concomitant]
     Dosage: UNK
  10. DUROFERON [Concomitant]
     Dosage: UNK
  11. PREDNISOLONE [Concomitant]
     Dosage: UNK
  12. FURIX [Concomitant]
     Dosage: UNK
  13. DALTEPARIN SODIUM [Concomitant]
     Dosage: UNK
  14. ALVEDON [Concomitant]
     Dosage: UNK

REACTIONS (2)
  - MENINGISM [None]
  - PYREXIA [None]
